FAERS Safety Report 18557535 (Version 1)
Quarter: 2020Q4

REPORT INFORMATION
  Report Type: Spontaneous
  Country: US (occurrence: US)
  Receive Date: 20201130
  Receipt Date: 20201130
  Transmission Date: 20210114
  Serious: No
  Sender: FDA-Public Use
  Company Number: US-MSNLABS-2020MSNSPO00405

PATIENT

DRUGS (4)
  1. LORAZEPAM. [Concomitant]
     Active Substance: LORAZEPAM
     Route: 065
  2. PROPANOL [Concomitant]
     Active Substance: PROPRANOLOL HYDROCHLORIDE
     Route: 065
  3. LYRICA [Suspect]
     Active Substance: PREGABALIN
     Indication: NEUROPATHY PERIPHERAL
     Dosage: 2 CAPSULES AT A TIME
     Route: 065
     Dates: start: 20201018
  4. PREGABALIN CAPSULES 200 MG [Suspect]
     Active Substance: PREGABALIN
     Indication: NEUROPATHY PERIPHERAL
     Route: 048
     Dates: start: 20201019

REACTIONS (11)
  - Sedation [Unknown]
  - Fatigue [Unknown]
  - Sleep disorder [Unknown]
  - Middle insomnia [Unknown]
  - Feeling abnormal [Unknown]
  - Hypoaesthesia [Unknown]
  - Insomnia [Unknown]
  - Product label issue [Unknown]
  - Terminal insomnia [Unknown]
  - Drug ineffective [Unknown]
  - Initial insomnia [Unknown]
